FAERS Safety Report 25468629 (Version 1)
Quarter: 2025Q2

REPORT INFORMATION
  Report Type: Spontaneous
  Country: GB (occurrence: GB)
  Receive Date: 20250623
  Receipt Date: 20250623
  Transmission Date: 20250716
  Serious: Yes (Other)
  Sender: PFIZER
  Company Number: None

PATIENT
  Age: 52 Year
  Sex: Female

DRUGS (7)
  1. METHOTREXATE SODIUM [Suspect]
     Active Substance: METHOTREXATE SODIUM
  2. LANSOPRAZOLE [Suspect]
     Active Substance: LANSOPRAZOLE
  3. IBUPROFEN [Suspect]
     Active Substance: IBUPROFEN
  4. SULFASALAZINE [Suspect]
     Active Substance: SULFASALAZINE
  5. BUTRANS [Suspect]
     Active Substance: BUPRENORPHINE
  6. BUPRENORPHINE [Suspect]
     Active Substance: BUPRENORPHINE
  7. ACYCLOVIR [Suspect]
     Active Substance: ACYCLOVIR

REACTIONS (4)
  - Joint stiffness [Unknown]
  - Arthralgia [Unknown]
  - Rash [Unknown]
  - Musculoskeletal pain [Unknown]
